APPROVED DRUG PRODUCT: AMINOPHYLLIN
Active Ingredient: AMINOPHYLLINE
Strength: 100MG
Dosage Form/Route: TABLET;ORAL
Application: N002386 | Product #002
Applicant: GD SEARLE LLC
Approved: Approved Prior to Jan 1, 1982 | RLD: No | RS: No | Type: DISCN